FAERS Safety Report 12362696 (Version 3)
Quarter: 2016Q2

REPORT INFORMATION
  Report Type: Report from Study
  Country: CA (occurrence: CA)
  Receive Date: 20160512
  Receipt Date: 20160525
  Transmission Date: 20160815
  Serious: Yes (Hospitalization)
  Sender: FDA-Public Use
  Company Number: CA-B.I. PHARMACEUTICALS,INC./RIDGEFIELD-2016-BI-28938CN

PATIENT
  Age: 77 Year
  Sex: Female

DRUGS (1)
  1. OFEV [Suspect]
     Active Substance: NINTEDANIB
     Indication: IDIOPATHIC PULMONARY FIBROSIS
     Dosage: 300 MG
     Route: 048
     Dates: start: 20160502, end: 20160505

REACTIONS (8)
  - Loss of consciousness [Recovered/Resolved]
  - Diarrhoea [Unknown]
  - Fall [Unknown]
  - Nausea [Recovered/Resolved]
  - Vomiting [Unknown]
  - Dizziness [Unknown]
  - Diarrhoea haemorrhagic [Recovered/Resolved]
  - Vomiting [Recovered/Resolved]

NARRATIVE: CASE EVENT DATE: 20160502
